FAERS Safety Report 16392378 (Version 1)
Quarter: 2019Q2

REPORT INFORMATION
  Report Type: Spontaneous
  Country: CA (occurrence: CA)
  Receive Date: 20190605
  Receipt Date: 20190605
  Transmission Date: 20190711
  Serious: Yes (Life-Threatening, Other)
  Sender: FDA-Public Use
  Company Number: CA-AUROBINDO-AUR-APL-2019-030807

PATIENT

DRUGS (9)
  1. AMPICILLIN [Suspect]
     Active Substance: AMPICILLIN
     Indication: PERITONEAL CLOUDY EFFLUENT
     Dosage: UNK
     Route: 042
  2. AMPICILLIN [Suspect]
     Active Substance: AMPICILLIN
     Indication: LISTERIOSIS
  3. VANCOMYCIN HYDROCHLORIDE. [Suspect]
     Active Substance: VANCOMYCIN HYDROCHLORIDE
     Indication: LISTERIOSIS
  4. CEFTAZIDIME SODIUM [Suspect]
     Active Substance: CEFTAZIDIME SODIUM
     Indication: LISTERIOSIS
  5. GENTAMICINE [Suspect]
     Active Substance: GENTAMICIN
     Indication: LISTERIOSIS
     Dosage: UNK
     Route: 065
  6. SULFAMETHOXAZOLE AND TRIMETHOPRIM [Suspect]
     Active Substance: SULFAMETHOXAZOLE\TRIMETHOPRIM
     Indication: EVIDENCE BASED TREATMENT
     Dosage: UNK
     Route: 042
  7. CEFTAZIDIME SODIUM [Suspect]
     Active Substance: CEFTAZIDIME SODIUM
     Indication: PERITONEAL CLOUDY EFFLUENT
     Dosage: UNK
     Route: 033
  8. SULFAMETHOXAZOLE AND TRIMETHOPRIM [Suspect]
     Active Substance: SULFAMETHOXAZOLE\TRIMETHOPRIM
     Indication: LISTERIOSIS
  9. VANCOMYCIN HYDROCHLORIDE. [Suspect]
     Active Substance: VANCOMYCIN HYDROCHLORIDE
     Indication: PERITONEAL CLOUDY EFFLUENT
     Dosage: UNK
     Route: 033

REACTIONS (2)
  - Drug hypersensitivity [Not Recovered/Not Resolved]
  - Drug ineffective [Not Recovered/Not Resolved]
